FAERS Safety Report 8377030-0 (Version None)
Quarter: 2012Q2

REPORT INFORMATION
  Report Type: 
  Country: None (occurrence: None)
  Receive Date: 20120522
  Receipt Date: 20120518
  Transmission Date: 20120825
  Serious: Yes (Hospitalization)
  Sender: FDA-Public Use
  Company Number: US-PFIZER INC-2012121480

PATIENT
  Sex: Female
  Weight: 90.703 kg

DRUGS (3)
  1. REVATIO [Suspect]
     Indication: PULMONARY ARTERIAL HYPERTENSION
     Dosage: 20 MG, 3X/DAY
     Route: 048
  2. TRACLEER [Suspect]
     Dosage: UNK
  3. PRILOSEC [Concomitant]
     Dosage: 20 MG, UNK

REACTIONS (1)
  - FALL [None]
